FAERS Safety Report 15591468 (Version 1)
Quarter: 2018Q4

REPORT INFORMATION
  Report Type: Spontaneous
  Country: US (occurrence: US)
  Receive Date: 20181106
  Receipt Date: 20181106
  Transmission Date: 20190205
  Serious: Yes (Disabling)
  Sender: FDA-Public Use
  Company Number: None

PATIENT
  Age: 51 Year
  Sex: Female
  Weight: 68.4 kg

DRUGS (12)
  1. NEUROMAG [Concomitant]
  2. MIGRELIEF [Concomitant]
  3. TUMERIC [Concomitant]
     Active Substance: HERBALS\TURMERIC
  4. ASA [Concomitant]
     Active Substance: ASPIRIN
  5. B12 SL [Concomitant]
  6. VITAMIN D3 [Concomitant]
     Active Substance: CHOLECALCIFEROL
  7. GADOLINIUM CONTRAST [Suspect]
     Active Substance: GADOLINIUM
     Indication: NUCLEAR MAGNETIC RESONANCE IMAGING BRAIN
     Dosage: ?          OTHER FREQUENCY:MULTIPLE TIMES;?
     Route: 042
     Dates: start: 20161008
  8. VITAMIN B COMPLEX [Concomitant]
     Active Substance: CYANOCOBALAMIN\DEXPANTHENOL\NIACINAMIDE\PYRIDOXINE HYDROCHLORIDE\RIBOFLAVIN 5^-PHOSPHATE SODIUM\THIAMINE HYDROCHLORIDE\VITAMIN B COMPLEX
  9. ZANTAC [Concomitant]
     Active Substance: RANITIDINE HYDROCHLORIDE
  10. ASHWAGANDA [Concomitant]
  11. MAGNESIUM POWDER [Concomitant]
  12. ZINC. [Concomitant]
     Active Substance: ZINC

REACTIONS (15)
  - Migraine [None]
  - Pain [None]
  - Visual impairment [None]
  - Headache [None]
  - Feeling abnormal [None]
  - Lethargy [None]
  - Joint stiffness [None]
  - Rash [None]
  - Pain of skin [None]
  - Paraesthesia [None]
  - Anxiety [None]
  - Feeling cold [None]
  - Arthralgia [None]
  - Back pain [None]
  - Joint noise [None]

NARRATIVE: CASE EVENT DATE: 20161008
